FAERS Safety Report 14553657 (Version 1)
Quarter: 2018Q1

REPORT INFORMATION
  Report Type: Spontaneous
  Country: US (occurrence: US)
  Receive Date: 20180220
  Receipt Date: 20180220
  Transmission Date: 20180509
  Serious: No
  Sender: FDA-Public Use
  Company Number: US-COLLEGIUM PHARMACEUTICAL, INC.-2017CGM00113

PATIENT
  Sex: Male
  Weight: 102.95 kg

DRUGS (6)
  1. TRAZODONE [Suspect]
     Active Substance: TRAZODONE HYDROCHLORIDE
     Dosage: 350 MG, 1X/DAY NIGHTLY
  2. GABAPENTIN. [Suspect]
     Active Substance: GABAPENTIN
     Dosage: 600 MG, 3X/DAY
  3. VENLAFAXINE XR [Suspect]
     Active Substance: VENLAFAXINE HYDROCHLORIDE
     Dosage: 150 MG, 1X/DAY
  4. OXYCODONE IR [Suspect]
     Active Substance: OXYCODONE
     Indication: PAIN
     Dosage: UNK, 1-3 TIMES PER DAY
  5. XTAMPZA ER [Suspect]
     Active Substance: OXYCODONE
     Indication: PAIN
     Dosage: 13.5 MG, 2X/DAY
     Route: 048
     Dates: start: 201701, end: 201712
  6. PROMETHAZINE [Suspect]
     Active Substance: PROMETHAZINE\PROMETHAZINE HYDROCHLORIDE
     Indication: NAUSEA
     Dosage: UNK

REACTIONS (2)
  - Dizziness [Unknown]
  - Somnolence [Unknown]

NARRATIVE: CASE EVENT DATE: 2017
